FAERS Safety Report 12311667 (Version 1)
Quarter: 2016Q2

REPORT INFORMATION
  Report Type: Spontaneous
  Country: US (occurrence: CA)
  Receive Date: 20160427
  Receipt Date: 20160427
  Transmission Date: 20160815
  Serious: No
  Sender: FDA-Public Use
  Company Number: CA-FRI-1000084195

PATIENT
  Sex: Female
  Weight: 79 kg

DRUGS (8)
  1. QUETIAPINE FUMARATE. [Concomitant]
     Active Substance: QUETIAPINE FUMARATE
     Dates: start: 20140109
  2. SALBUTAMOL ALDO UNION [Concomitant]
     Dates: start: 20080327
  3. DOXYCYCLINE. [Concomitant]
     Active Substance: DOXYCYCLINE
     Dates: start: 20160308
  4. FLUTICASONE PROPIONATE. [Concomitant]
     Active Substance: FLUTICASONE PROPIONATE
     Dates: start: 20080327
  5. VENLAFAXINE HYDROCHLORIDE. [Concomitant]
     Active Substance: VENLAFAXINE HYDROCHLORIDE
     Dates: start: 20081125
  6. ZOPICLONE [Concomitant]
     Active Substance: ZOPICLONE
     Dates: start: 20120223
  7. SAPHRIS [Suspect]
     Active Substance: ASENAPINE MALEATE
     Indication: BIPOLAR DISORDER
     Dosage: 5 MG
     Route: 060
     Dates: start: 20160412
  8. LAMOTRIGINE. [Concomitant]
     Active Substance: LAMOTRIGINE
     Dates: start: 20160324

REACTIONS (4)
  - Formication [Unknown]
  - Restlessness [Unknown]
  - Muscle twitching [Unknown]
  - Pruritus [Unknown]
